FAERS Safety Report 15675384 (Version 1)
Quarter: 2018Q4

REPORT INFORMATION
  Report Type: Spontaneous
  Country: US (occurrence: US)
  Receive Date: 20181130
  Receipt Date: 20181130
  Transmission Date: 20190205
  Serious: Yes (Other)
  Sender: FDA-Public Use
  Company Number: US-BAYER-2018-220123

PATIENT
  Sex: Female

DRUGS (1)
  1. MIRENA [Suspect]
     Active Substance: LEVONORGESTREL
     Dosage: UNK
     Dates: start: 2012

REACTIONS (10)
  - Musculoskeletal pain [None]
  - Nausea [None]
  - Vomiting [None]
  - Deafness unilateral [None]
  - Idiopathic intracranial hypertension [None]
  - Tinnitus [None]
  - Vision blurred [None]
  - Headache [None]
  - Neck pain [None]
  - Back pain [None]
